FAERS Safety Report 6106955-1 (Version None)
Quarter: 2009Q1

REPORT INFORMATION
  Report Type: 
  Country: None (occurrence: None)
  Receive Date: 20090309
  Receipt Date: 20090304
  Transmission Date: 20090719
  Serious: Yes (Other)
  Sender: FDA-Public Use
  Company Number: BR-JNJFOC-20090301386

PATIENT
  Age: 25 Year
  Sex: Female
  Weight: 30.84 kg

DRUGS (1)
  1. SPORANOX [Suspect]
     Indication: TINEA PEDIS
     Dosage: PULSE THERAPY
     Route: 065

REACTIONS (6)
  - ABDOMINAL PAIN [None]
  - FATIGUE [None]
  - INSOMNIA [None]
  - MEDICATION ERROR [None]
  - RENAL PAIN [None]
  - TACHYCARDIA [None]
